FAERS Safety Report 5332734-9 (Version None)
Quarter: 2007Q2

REPORT INFORMATION
  Report Type: 
  Country: None (occurrence: None)
  Receive Date: 20070518
  Receipt Date: 20070502
  Transmission Date: 20071010
  Serious: Yes (Other)
  Sender: FDA-Public Use
  Company Number: DSA_61560_2007

PATIENT
  Sex: Female

DRUGS (1)
  1. DIHYDROERGOTAMINE MESYLATE [Suspect]
     Indication: MIGRAINE

REACTIONS (1)
  - POLYNEUROPATHY [None]
